FAERS Safety Report 24799329 (Version 1)
Quarter: 2024Q4

REPORT INFORMATION
  Report Type: Spontaneous
  Country: US (occurrence: None)
  Receive Date: 20241231
  Receipt Date: 20241231
  Transmission Date: 20250115
  Serious: Yes (Hospitalization)
  Sender: Public
  Company Number: None

PATIENT
  Sex: Male

DRUGS (5)
  1. GAMMAGARD LIQUID [Suspect]
     Active Substance: HUMAN IMMUNOGLOBULIN G
     Indication: Immune thrombocytopenia
     Dosage: OTHER STRENGTH : 10GM/100M ;?OTHER FREQUENCY : 2 DAYS EVERY 4 WEEKS;?
     Route: 042
     Dates: start: 201808
  2. GAMMAGARD LIQUID [Suspect]
     Active Substance: HUMAN IMMUNOGLOBULIN G
     Indication: Immune thrombocytopenia
     Dosage: OTHER STRENGTH : 5GM/50ML;?OTHER FREQUENCY : 2 DAYS EVERY 4 WEEKS;?
     Route: 042
     Dates: start: 201809
  3. DOPTELET [Concomitant]
     Active Substance: AVATROMBOPAG MALEATE
  4. AMBRISENTAN [Concomitant]
     Active Substance: AMBRISENTAN
  5. SILDENAFIL CITRATE [Concomitant]
     Active Substance: SILDENAFIL CITRATE

REACTIONS (1)
  - Thrombocytopenia [None]
